FAERS Safety Report 8345160-5 (Version None)
Quarter: 2012Q2

REPORT INFORMATION
  Report Type: 
  Country: None (occurrence: None)
  Receive Date: 20120504
  Receipt Date: 20120425
  Transmission Date: 20120825
  Serious: Yes (Hospitalization)
  Sender: FDA-Public Use
  Company Number: 1272249

PATIENT
  Age: 47 Year
  Sex: Male

DRUGS (6)
  1. CEFAZOLIN [Suspect]
     Indication: DEVICE RELATED INFECTION
     Dosage: INTRAVENOUS
     Route: 042
  2. CEFAZOLIN [Suspect]
     Indication: STAPHYLOCOCCAL INFECTION
     Dosage: INTRAVENOUS
     Route: 042
  3. ANESTHETICS [Concomitant]
  4. GABAPENTIN [Concomitant]
  5. BENZODIAZEPINE RELATED DRUGS [Concomitant]
  6. OPIU ALKALOIDS AND DERIVATIVES) [Concomitant]

REACTIONS (7)
  - STUPOR [None]
  - NEUROTOXICITY [None]
  - LETHARGY [None]
  - DEPRESSED LEVEL OF CONSCIOUSNESS [None]
  - MYOCLONUS [None]
  - DELAYED RECOVERY FROM ANAESTHESIA [None]
  - DRUG LEVEL INCREASED [None]
